FAERS Safety Report 7270159-X (Version None)
Quarter: 2011Q1

REPORT INFORMATION
  Report Type: 
  Country: None (occurrence: None)
  Receive Date: 20110202
  Receipt Date: 20110124
  Transmission Date: 20110831
  Serious: Yes (Hospitalization)
  Sender: FDA-Public Use
  Company Number: DE-TEVA-264397GER

PATIENT
  Age: 70 Year
  Sex: Male
  Weight: 103 kg

DRUGS (7)
  1. BACLOFEN 10 [Suspect]
     Indication: MUSCLE SPASTICITY
     Route: 048
     Dates: start: 20090101
  2. METFORMIN [Suspect]
     Indication: DIABETES MELLITUS
     Route: 048
     Dates: start: 20090101
  3. METOPROLOL 50 [Suspect]
     Indication: HYPERTENSION
     Dates: start: 20090101
  4. RAMIPRIL [Concomitant]
     Indication: HYPERTENSION
     Route: 048
     Dates: start: 20090101
  5. ISCOVER [Suspect]
     Indication: PLATELET AGGREGATION
     Route: 048
     Dates: start: 20090101
  6. GABAPENTIN [Concomitant]
     Route: 048
     Dates: start: 20090101
  7. CITALOPRAM 40 [Suspect]
     Indication: DEPRESSION
     Route: 048
     Dates: start: 20090101

REACTIONS (1)
  - GASTRIC ULCER [None]
